FAERS Safety Report 5318445-4 (Version None)
Quarter: 2007Q2

REPORT INFORMATION
  Report Type: 
  Country: None (occurrence: None)
  Receive Date: 20070430
  Receipt Date: 20070416
  Transmission Date: 20071010
  Serious: Yes (Death)
  Sender: FDA-Public Use
  Company Number: 2007PV000019

PATIENT
  Age: 5 Year
  Sex: Male

DRUGS (1)
  1. DEPOCYT [Suspect]
     Indication: ACUTE LYMPHOCYTIC LEUKAEMIA
     Dosage: 35 MG

REACTIONS (6)
  - CONFUSIONAL STATE [None]
  - DISEASE PROGRESSION [None]
  - DRUG INTERACTION [None]
  - HALLUCINATION [None]
  - MUCOSAL INFLAMMATION [None]
  - SOMNOLENCE [None]
